FAERS Safety Report 23090054 (Version 1)
Quarter: 2023Q4

REPORT INFORMATION
  Report Type: Report from Study
  Country: CA (occurrence: CA)
  Receive Date: 20231020
  Receipt Date: 20231020
  Transmission Date: 20240109
  Serious: Yes (Other)
  Sender: FDA-Public Use
  Company Number: CA-TAKEDA-2022TUS015596

PATIENT
  Age: 36 Year
  Sex: Female
  Weight: 122 kg

DRUGS (4)
  1. HUMAN IMMUNOGLOBULIN G [Suspect]
     Active Substance: HUMAN IMMUNOGLOBULIN G
     Indication: Primary immunodeficiency syndrome
     Dosage: 12 GRAM, 1/WEEK
     Route: 065
     Dates: start: 20220307
  2. HUMAN IMMUNOGLOBULIN G [Suspect]
     Active Substance: HUMAN IMMUNOGLOBULIN G
     Indication: Hypogammaglobulinaemia
     Dosage: 12 GRAM, 1/WEEK
     Route: 050
     Dates: start: 20220308, end: 202304
  3. HUMAN IMMUNOGLOBULIN G [Suspect]
     Active Substance: HUMAN IMMUNOGLOBULIN G
     Indication: Immunodeficiency common variable
     Dosage: UNK
     Route: 058
  4. HYDROXYCHLOROQUINE [Concomitant]
     Active Substance: HYDROXYCHLOROQUINE
     Dosage: UNK
     Route: 065

REACTIONS (13)
  - Sinusitis bacterial [Unknown]
  - Exposure during pregnancy [Unknown]
  - Upper respiratory tract infection [Unknown]
  - Sleep disorder [Unknown]
  - Viral upper respiratory tract infection [Unknown]
  - Blood immunoglobulin G decreased [Unknown]
  - Asthenia [Unknown]
  - Feeling hot [Recovered/Resolved]
  - Chills [Unknown]
  - Dizziness [Recovered/Resolved]
  - Myalgia [Unknown]
  - Nausea [Unknown]
  - Anxiety [Unknown]

NARRATIVE: CASE EVENT DATE: 20220307
